FAERS Safety Report 7152551-7 (Version None)
Quarter: 2010Q4

REPORT INFORMATION
  Report Type: 
  Country: None (occurrence: None)
  Receive Date: 20101209
  Receipt Date: 20101209
  Transmission Date: 20110411
  Serious: Yes (Hospitalization)
  Sender: FDA-Public Use
  Company Number: None

PATIENT
  Sex: Female
  Weight: 66.6 kg

DRUGS (6)
  1. ABRAXANE [Suspect]
  2. CARBOPLATIN [Suspect]
  3. BEVACIZUMAB [Suspect]
  4. METFORMIN HCL [Concomitant]
  5. TIMOLOL [Concomitant]
  6. CITALOPRAM [Concomitant]

REACTIONS (4)
  - BREAST CANCER METASTATIC [None]
  - MALIGNANT NEOPLASM PROGRESSION [None]
  - METASTASES TO CENTRAL NERVOUS SYSTEM [None]
  - PLEURAL EFFUSION [None]
